FAERS Safety Report 4267655-6 (Version None)
Quarter: 2004Q1

REPORT INFORMATION
  Report Type: 
  Country: None (occurrence: None)
  Receive Date: 20040109
  Receipt Date: 20031120
  Transmission Date: 20041129
  Serious: No
  Sender: FDA-Public Use
  Company Number: US-GLAXOSMITHKLINE-A0440607A

PATIENT
  Age: 82 Year
  Sex: Female

DRUGS (7)
  1. WELLBUTRIN [Suspect]
     Indication: ILL-DEFINED DISORDER
     Dosage: 150MG PER DAY
     Route: 048
     Dates: start: 20031105, end: 20031117
  2. LUVOX [Concomitant]
  3. RISPERDAL [Concomitant]
  4. LITHIUM CARBONATE [Concomitant]
  5. ZOCOR [Concomitant]
     Dosage: 40MG PER DAY
  6. METOPROLOL [Concomitant]
     Dosage: 50MG TWICE PER DAY
  7. PRILOSEC [Concomitant]
     Dosage: 20MG PER DAY

REACTIONS (2)
  - AMNESIA [None]
  - TINNITUS [None]
